FAERS Safety Report 7279389-4 (Version None)
Quarter: 2011Q1

REPORT INFORMATION
  Report Type: 
  Country: None (occurrence: None)
  Receive Date: 20110208
  Receipt Date: 20110124
  Transmission Date: 20110831
  Serious: Yes (Hospitalization)
  Sender: FDA-Public Use
  Company Number: SE-BIOGENIDEC-2010BI004234

PATIENT
  Age: 45 Year
  Sex: Female
  Weight: 70 kg

DRUGS (4)
  1. TRIO-B [Concomitant]
     Indication: MEDICAL DIET
     Route: 048
  2. AMPHETAMINE [Concomitant]
     Indication: FATIGUE
     Route: 048
  3. TYSABRI [Suspect]
     Indication: SECONDARY PROGRESSIVE MULTIPLE SCLEROSIS
     Route: 042
     Dates: start: 20070601, end: 20091230
  4. TYSABRI [Suspect]
     Route: 042
     Dates: start: 20070301

REACTIONS (5)
  - FALL [None]
  - MULTIPLE SCLEROSIS RELAPSE [None]
  - PROGRESSIVE MULTIFOCAL LEUKOENCEPHALOPATHY [None]
  - IMMUNE RECONSTITUTION SYNDROME [None]
  - GENERAL PHYSICAL HEALTH DETERIORATION [None]
